FAERS Safety Report 5278377-7 (Version None)
Quarter: 2007Q1

REPORT INFORMATION
  Report Type: 
  Country: None (occurrence: None)
  Receive Date: 20070322
  Receipt Date: 20070314
  Transmission Date: 20070707
  Serious: Yes (Other)
  Sender: FDA-Public Use
  Company Number: 2007US-06413

PATIENT
  Age: 23 Year
  Sex: Male

DRUGS (1)
  1. CLINDAMYCIN HCL [Suspect]
     Indication: INFECTION
     Dosage: 300 MG, QID, ORAL
     Route: 048
     Dates: start: 20070219, end: 20070301

REACTIONS (1)
  - DIZZINESS [None]
